FAERS Safety Report 8485322-X (Version None)
Quarter: 2012Q3

REPORT INFORMATION
  Report Type: 
  Country: None (occurrence: None)
  Receive Date: 20120703
  Receipt Date: 20120625
  Transmission Date: 20120928
  Serious: Yes (Death)
  Sender: FDA-Public Use
  Company Number: US-ROCHE-1079369

PATIENT
  Sex: Male
  Weight: 89.438 kg

DRUGS (4)
  1. AVASTIN [Suspect]
     Indication: COLON CANCER
     Route: 042
     Dates: start: 20111116, end: 20120411
  2. FLUOROURACIL [Concomitant]
     Indication: COLON CANCER
     Route: 042
     Dates: start: 20111102, end: 20120411
  3. FLUOROURACIL [Concomitant]
     Route: 042
     Dates: start: 20111102, end: 20120411
  4. OXALIPLATIN [Concomitant]
     Indication: COLON CANCER
     Route: 042
     Dates: start: 20111102, end: 20120411

REACTIONS (2)
  - GASTROINTESTINAL HAEMORRHAGE [None]
  - ACUTE MYOCARDIAL INFARCTION [None]
